FAERS Safety Report 7679396-3 (Version None)
Quarter: 2011Q3

REPORT INFORMATION
  Report Type: 
  Country: None (occurrence: None)
  Receive Date: 20110812
  Receipt Date: 20110801
  Transmission Date: 20111222
  Serious: Yes (Hospitalization, Other)
  Sender: FDA-Public Use
  Company Number: US-JNJFOC-20081103798

PATIENT
  Sex: Female
  Weight: 63.2 kg

DRUGS (6)
  1. REMICADE [Suspect]
     Dosage: TOTAL 10 DOSES
     Route: 042
     Dates: start: 20080708
  2. PREDNISONE [Concomitant]
  3. REMICADE [Suspect]
     Indication: CROHN'S DISEASE
     Route: 042
     Dates: start: 20081021
  4. REMICADE [Suspect]
     Route: 042
     Dates: start: 20070508
  5. MERCAPTOPURINE [Concomitant]
  6. REMICADE [Suspect]
     Route: 042
     Dates: start: 20070619

REACTIONS (3)
  - ABDOMINAL PAIN [None]
  - DECREASED APPETITE [None]
  - VOMITING [None]
